FAERS Safety Report 18635402 (Version 1)
Quarter: 2020Q4

REPORT INFORMATION
  Report Type: Spontaneous
  Country: US (occurrence: US)
  Receive Date: 20201218
  Receipt Date: 20201218
  Transmission Date: 20210114
  Serious: Yes (Death)
  Sender: FDA-Public Use
  Company Number: US-UPSHER-SMITH LABORATORIES, LLC-2020USL00653

PATIENT
  Sex: Female

DRUGS (3)
  1. PACERONE [Suspect]
     Active Substance: AMIODARONE HYDROCHLORIDE
     Dosage: 400 MG, 1X/DAY
  2. PACERONE [Suspect]
     Active Substance: AMIODARONE HYDROCHLORIDE
     Indication: ATRIAL FIBRILLATION
     Dosage: 400 MG, 2X/DAY
  3. UNSPECIFIED ORAL BLOOD THINNER [Concomitant]

REACTIONS (3)
  - Lung diffusion test decreased [Unknown]
  - Weight decreased [Unknown]
  - Pulmonary toxicity [Fatal]

NARRATIVE: CASE EVENT DATE: 201903
